FAERS Safety Report 11079683 (Version 2)
Quarter: 2015Q2

REPORT INFORMATION
  Report Type: Report from Study
  Country: KE (occurrence: KE)
  Receive Date: 20150430
  Receipt Date: 20150512
  Transmission Date: 20150821
  Serious: Yes (Other)
  Sender: FDA-Public Use
  Company Number: KE-GILEAD-2012-0055823

PATIENT
  Age: 34 Year
  Sex: Female
  Weight: 63 kg

DRUGS (4)
  1. EMTRICITABINE/TENOFOVIR DISOPROXIL FUMARATE [Suspect]
     Active Substance: EMTRICITABINE\TENOFOVIR DISOPROXIL
     Indication: PROPHYLAXIS AGAINST HIV INFECTION
     Dosage: UNK
     Route: 065
     Dates: start: 20111115, end: 20120112
  2. ALUMINIUM-MAGNESIUM HYDROXIDE W/SIMETHICONE [Concomitant]
     Dosage: UNK
     Dates: start: 20111214, end: 20111218
  3. PLACEBO [Suspect]
     Active Substance: UNSPECIFIED INGREDIENT
     Indication: PROPHYLAXIS AGAINST HIV INFECTION
     Dosage: UNK
     Route: 065
     Dates: start: 20091222, end: 20111114
  4. ALUMINIUM-MAGNESIUM HYDROXIDE W/SIMETHICONE [Concomitant]
     Indication: PRODUCT USED FOR UNKNOWN INDICATION
     Dosage: UNK
     Dates: start: 20120209, end: 20120212

REACTIONS (1)
  - Abortion spontaneous [Recovered/Resolved]

NARRATIVE: CASE EVENT DATE: 20120212
